FAERS Safety Report 7709361-9 (Version None)
Quarter: 2011Q3

REPORT INFORMATION
  Report Type: 
  Country: None (occurrence: None)
  Receive Date: 20110825
  Receipt Date: 20110815
  Transmission Date: 20111222
  Serious: Yes (Other)
  Sender: FDA-Public Use
  Company Number: US-VIROPHARMA INCORPORATED-20110815CINRY2195

PATIENT
  Sex: Female

DRUGS (1)
  1. CINRYZE [Suspect]
     Indication: HEREDITARY ANGIOEDEMA
     Dates: start: 20080101

REACTIONS (4)
  - VASCULAR GRAFT OCCLUSION [None]
  - VENA CAVA INJURY [None]
  - POOR VENOUS ACCESS [None]
  - MEDICAL DEVICE COMPLICATION [None]
